FAERS Safety Report 6386262-2 (Version None)
Quarter: 2009Q4

REPORT INFORMATION
  Report Type: 
  Country: None (occurrence: None)
  Receive Date: 20091002
  Receipt Date: 20090930
  Transmission Date: 20100525
  Serious: Yes (Hospitalization)
  Sender: FDA-Public Use
  Company Number: US-BAYER-200934088GPV

PATIENT
  Age: 55 Year
  Sex: Female
  Weight: 47 kg

DRUGS (12)
  1. SORAFENIB [Suspect]
     Indication: RENAL CELL CARCINOMA
     Dosage: TOTAL DAILY DOSE: 400 MG
     Route: 048
     Dates: start: 20090421
  2. NALOXONE [Concomitant]
  3. OXYGESIC [Concomitant]
  4. LYRICA [Concomitant]
  5. NOVALGIN [Concomitant]
  6. AMLODIPINE [Concomitant]
  7. METOHEXAL [Concomitant]
  8. LAXANS RATIOPHARM [Concomitant]
  9. PARAFFIN [Concomitant]
  10. PANTOZOL [Concomitant]
  11. MCP ALIUD PHARMA [Concomitant]
  12. L-THYROXIN [Concomitant]

REACTIONS (1)
  - GENERAL PHYSICAL HEALTH DETERIORATION [None]
